FAERS Safety Report 13593217 (Version 1)
Quarter: 2017Q2

REPORT INFORMATION
  Report Type: Spontaneous
  Country: US (occurrence: US)
  Receive Date: 20170530
  Receipt Date: 20170530
  Transmission Date: 20170830
  Serious: Yes (Other)
  Sender: FDA-Public Use
  Company Number: US-AKORN PHARMACEUTICALS-2017AKN00693

PATIENT
  Sex: Male

DRUGS (1)
  1. MYORISAN [Suspect]
     Active Substance: ISOTRETINOIN
     Dosage: UNK
     Dates: start: 20170329, end: 2017

REACTIONS (4)
  - Social avoidant behaviour [Recovering/Resolving]
  - Decreased appetite [Recovering/Resolving]
  - Mood altered [Recovering/Resolving]
  - Fatigue [Recovering/Resolving]
